FAERS Safety Report 10430635 (Version 1)
Quarter: 2014Q3

REPORT INFORMATION
  Report Type: Spontaneous
  Country: US (occurrence: None)
  Receive Date: 20140903
  Receipt Date: 20140903
  Transmission Date: 20150326
  Serious: Yes (Other)
  Sender: FDA-Public Use
  Company Number: None

PATIENT
  Age: 17 Year
  Sex: Female
  Weight: 55.79 kg

DRUGS (1)
  1. XULANE [Suspect]
     Active Substance: ETHINYL ESTRADIOL\NORELGESTROMIN
     Indication: CONTRACEPTION
     Dosage: 1 PATCH, 1XWK, TRANSDERMAL
     Route: 062
     Dates: start: 20140720, end: 20140721

REACTIONS (3)
  - Swelling [None]
  - Application site pruritus [None]
  - Erythema [None]

NARRATIVE: CASE EVENT DATE: 20140720
